FAERS Safety Report 4595823-2 (Version None)
Quarter: 2005Q1

REPORT INFORMATION
  Report Type: 
  Country: None (occurrence: None)
  Receive Date: 20050302
  Receipt Date: 20050204
  Transmission Date: 20050727
  Serious: Yes (Other)
  Sender: FDA-Public Use
  Company Number: PHEH2005US01693

PATIENT
  Age: 65 Year
  Sex: Male
  Weight: 165 kg

DRUGS (3)
  1. EXELON [Suspect]
     Indication: DEMENTIA ALZHEIMER'S TYPE
  2. ABILIFY [Suspect]
     Dosage: 10 UNK, QD
     Route: 048
  3. ALPRAZOLAM [Concomitant]

REACTIONS (2)
  - AKATHISIA [None]
  - DRUG INEFFECTIVE [None]
